FAERS Safety Report 7801289-9 (Version None)
Quarter: 2011Q4

REPORT INFORMATION
  Report Type: 
  Country: None (occurrence: None)
  Receive Date: 20111007
  Receipt Date: 20091002
  Transmission Date: 20120403
  Serious: No
  Sender: FDA-Public Use
  Company Number: 2009BI031877

PATIENT
  Sex: Female

DRUGS (3)
  1. AVONEX [Concomitant]
     Indication: MULTIPLE SCLEROSIS
     Route: 030
     Dates: start: 20030101
  2. TYSABRI [Suspect]
     Indication: MULTIPLE SCLEROSIS
     Route: 042
     Dates: start: 20090624, end: 20090819
  3. AVONEX [Concomitant]
     Route: 030
     Dates: start: 20091109

REACTIONS (8)
  - MOTOR DYSFUNCTION [None]
  - SECONDARY PROGRESSIVE MULTIPLE SCLEROSIS [None]
  - EXERCISE TOLERANCE DECREASED [None]
  - FATIGUE [None]
  - DYSSTASIA [None]
  - PROGRESSIVE MULTIPLE SCLEROSIS [None]
  - DRUG INEFFECTIVE [None]
  - LOSS OF CONTROL OF LEGS [None]
